FAERS Safety Report 4896417-1 (Version None)
Quarter: 2006Q1

REPORT INFORMATION
  Report Type: 
  Country: None (occurrence: None)
  Receive Date: 20060126
  Receipt Date: 20060117
  Transmission Date: 20060701
  Serious: Yes (Life-Threatening, Hospitalization)
  Sender: FDA-Public Use
  Company Number: 2006009667

PATIENT
  Age: 62 Year
  Sex: Female

DRUGS (6)
  1. CABERGOLINE [Suspect]
     Indication: PARKINSON'S DISEASE
     Dosage: 4 MG (4 MG, EVERY DAY), ORAL
     Route: 048
     Dates: start: 20020101, end: 20051229
  2. FUROSEMIDE [Concomitant]
  3. PERINDOPRIL (PERINDOPRIL) [Concomitant]
  4. SPIRONOLACTONE [Concomitant]
  5. SALMETEROL (SALMETEROL) [Concomitant]
  6. SALBUTAMOL (SALBUTAMOL) [Concomitant]

REACTIONS (4)
  - AORTIC VALVE INCOMPETENCE [None]
  - CARDIAC VALVE DISEASE [None]
  - MITRAL VALVE INCOMPETENCE [None]
  - TRICUSPID VALVE INCOMPETENCE [None]
